FAERS Safety Report 9434379 (Version 5)
Quarter: 2014Q1

REPORT INFORMATION
  Report Type: Report from Study
  Country: KR (occurrence: KR)
  Receive Date: 20130801
  Receipt Date: 20140314
  Transmission Date: 20141002
  Serious: Yes (Hospitalization)
  Sender: FDA-Public Use
  Company Number: KR-JNJFOC-20130713489

PATIENT
  Age: 16 Year
  Sex: Male
  Weight: 63.8 kg

DRUGS (35)
  1. REMICADE [Suspect]
     Indication: CROHN^S DISEASE
     Route: 042
     Dates: start: 20121109, end: 20121109
  2. REMICADE [Suspect]
     Indication: CROHN^S DISEASE
     Route: 042
     Dates: start: 20120727, end: 20120727
  3. REMICADE [Suspect]
     Indication: CROHN^S DISEASE
     Route: 042
     Dates: start: 20120912, end: 20120912
  4. REMICADE [Suspect]
     Indication: CROHN^S DISEASE
     Route: 042
     Dates: start: 20120208, end: 20120523
  5. AZATHIOPRINE PCH [Concomitant]
     Indication: CROHN^S DISEASE
     Route: 048
     Dates: start: 20100720, end: 20110829
  6. PENTASA S.R. [Concomitant]
     Indication: CROHN^S DISEASE
     Dosage: 2.66 TAB
     Route: 048
     Dates: start: 20090810, end: 20110625
  7. SOLONDO [Concomitant]
     Indication: CROHN^S DISEASE
     Dosage: 1 MG/KG
     Route: 048
     Dates: start: 20090809, end: 20100106
  8. SOLONDO [Concomitant]
     Indication: CROHN^S DISEASE
     Route: 048
     Dates: start: 20120622, end: 20120726
  9. SOLONDO [Concomitant]
     Indication: CROHN^S DISEASE
     Route: 048
     Dates: start: 20121005, end: 20121011
  10. SOLONDO [Concomitant]
     Indication: CROHN^S DISEASE
     Route: 048
     Dates: start: 20120928, end: 20121004
  11. SOLONDO [Concomitant]
     Indication: CROHN^S DISEASE
     Route: 048
     Dates: start: 20120921, end: 20120927
  12. SOLONDO [Concomitant]
     Indication: CROHN^S DISEASE
     Route: 048
     Dates: start: 20120914, end: 20120920
  13. SOLONDO [Concomitant]
     Indication: CROHN^S DISEASE
     Route: 048
     Dates: start: 20120907, end: 20120913
  14. SOLONDO [Concomitant]
     Indication: CROHN^S DISEASE
     Route: 048
     Dates: start: 20120727, end: 20120802
  15. SOLONDO [Concomitant]
     Indication: CROHN^S DISEASE
     Route: 048
     Dates: start: 20120803, end: 20120809
  16. SOLONDO [Concomitant]
     Indication: CROHN^S DISEASE
     Route: 048
     Dates: start: 20120810, end: 20120816
  17. SOLONDO [Concomitant]
     Indication: CROHN^S DISEASE
     Route: 048
     Dates: start: 20120817, end: 20120823
  18. SOLONDO [Concomitant]
     Indication: CROHN^S DISEASE
     Route: 048
     Dates: start: 20120824, end: 20120830
  19. SOLONDO [Concomitant]
     Indication: CROHN^S DISEASE
     Route: 048
     Dates: start: 20120831, end: 20120906
  20. AZATHIOPRINE [Concomitant]
     Indication: CROHN^S DISEASE
     Route: 048
     Dates: start: 20120404, end: 20120911
  21. AZATHIOPRINE [Concomitant]
     Indication: CROHN^S DISEASE
     Route: 048
     Dates: start: 20130104
  22. AZATHIOPRINE [Concomitant]
     Indication: CROHN^S DISEASE
     Route: 048
     Dates: start: 20121010, end: 20130103
  23. NISOLONE [Concomitant]
     Indication: CROHN^S DISEASE
     Route: 048
     Dates: start: 20121012, end: 20121018
  24. NISOLONE [Concomitant]
     Indication: CROHN^S DISEASE
     Route: 048
     Dates: start: 20121123, end: 20121129
  25. NISOLONE [Concomitant]
     Indication: CROHN^S DISEASE
     Route: 048
     Dates: start: 20121019, end: 20121025
  26. NISOLONE [Concomitant]
     Indication: CROHN^S DISEASE
     Route: 048
     Dates: start: 20121026, end: 20121101
  27. NISOLONE [Concomitant]
     Indication: CROHN^S DISEASE
     Route: 048
     Dates: start: 20121102, end: 20121108
  28. NISOLONE [Concomitant]
     Indication: CROHN^S DISEASE
     Route: 048
     Dates: start: 20121109, end: 20121115
  29. NISOLONE [Concomitant]
     Indication: CROHN^S DISEASE
     Route: 048
     Dates: start: 20121116, end: 20121122
  30. CEFOTAXIME SODIUM [Concomitant]
     Indication: INFECTION
     Route: 042
     Dates: start: 20120229, end: 20120301
  31. METRONIDAZOLE [Concomitant]
     Indication: INFECTION
     Route: 042
     Dates: start: 20120229, end: 20120301
  32. METRONIDAZOLE [Concomitant]
     Indication: INFECTION
     Route: 048
     Dates: start: 20120301, end: 20120405
  33. DICKNOL [Concomitant]
     Indication: PYREXIA
     Route: 030
     Dates: start: 20120420, end: 20120420
  34. TYLENOL ER [Concomitant]
     Indication: PYREXIA
     Route: 048
     Dates: start: 20120420, end: 20120424
  35. BIOFLOR [Concomitant]
     Indication: FUNCTIONAL GASTROINTESTINAL DISORDER
     Route: 048
     Dates: start: 20120420, end: 20120424

REACTIONS (4)
  - Anal skin tags [Recovered/Resolved]
  - Haematochezia [Unknown]
  - Diarrhoea [Unknown]
  - Pyrexia [Recovered/Resolved]
